APPROVED DRUG PRODUCT: NIZORAL
Active Ingredient: KETOCONAZOLE
Strength: 2% **Federal Register determination that product was not discontinued or withdrawn for safety or effectiveness reasons**
Dosage Form/Route: SHAMPOO;TOPICAL
Application: N019927 | Product #001
Applicant: JANSSEN PHARMACEUTICALS INC
Approved: Aug 31, 1990 | RLD: Yes | RS: No | Type: DISCN